FAERS Safety Report 24857635 (Version 1)
Quarter: 2025Q1

REPORT INFORMATION
  Report Type: Spontaneous
  Country: US (occurrence: US)
  Receive Date: 20250117
  Receipt Date: 20250117
  Transmission Date: 20250409
  Serious: No
  Sender: PRAGMA PHARMACEUTICALS
  Company Number: US-PRAGMA-2024-US-030048

PATIENT
  Age: 39 Year

DRUGS (3)
  1. KEFLEX [Suspect]
     Active Substance: CEPHALEXIN
     Indication: Product used for unknown indication
  2. SPRYCEL [Suspect]
     Active Substance: DASATINIB
  3. DUPIXENT [Suspect]
     Active Substance: DUPILUMAB

REACTIONS (2)
  - Rash [Unknown]
  - Swelling [Unknown]
